FAERS Safety Report 8828871 (Version 3)
Quarter: 2013Q2

REPORT INFORMATION
  Report Type: Spontaneous
  Country: BR (occurrence: BR)
  Receive Date: 20121008
  Receipt Date: 20130402
  Transmission Date: 20140414
  Serious: Yes (Other)
  Sender: FDA-Public Use
  Company Number: BR-ROCHE-1141788

PATIENT
  Age: 17 Year
  Sex: Male

DRUGS (1)
  1. ROACUTAN [Suspect]
     Indication: ACNE CYSTIC
     Route: 048
     Dates: start: 20120327

REACTIONS (1)
  - VIIth nerve paralysis [Recovered/Resolved]
